FAERS Safety Report 7794957-9 (Version None)
Quarter: 2011Q3

REPORT INFORMATION
  Report Type: 
  Country: None (occurrence: None)
  Receive Date: 20110930
  Receipt Date: 20110916
  Transmission Date: 20111222
  Serious: Yes (Hospitalization)
  Sender: FDA-Public Use
  Company Number: 2011-1636

PATIENT
  Age: 46 Year
  Sex: Male

DRUGS (3)
  1. KEPPRA 1000(LEVETIRACETAM) [Concomitant]
  2. BOTULINUM TOXIN TYPE A [Suspect]
     Indication: PRODUCT USED FOR UNKNOWN INDICATION
     Dosage: (SINGLE CYCLE)
     Dates: start: 20090101, end: 20090101
  3. GABAPENTIN [Concomitant]

REACTIONS (5)
  - DEMENTIA ALZHEIMER'S TYPE [None]
  - AMNESTIC DISORDER [None]
  - CHOREA [None]
  - ENCEPHALITIS [None]
  - DYSTONIA [None]
